FAERS Safety Report 15781844 (Version 1)
Quarter: 2019Q1

REPORT INFORMATION
  Report Type: Spontaneous
  Country: BR (occurrence: BR)
  Receive Date: 20190102
  Receipt Date: 20190102
  Transmission Date: 20190417
  Serious: Yes (Other)
  Sender: FDA-Public Use
  Company Number: BR-MYLANLABS-2018M1096644

PATIENT
  Age: 25 Year
  Sex: Male

DRUGS (3)
  1. LITHIUM. [Suspect]
     Active Substance: LITHIUM
     Indication: BIPOLAR II DISORDER
  2. LITHIUM. [Suspect]
     Active Substance: LITHIUM
     Indication: BIPOLAR I DISORDER
     Route: 065
  3. BUPROPION. [Suspect]
     Active Substance: BUPROPION
     Indication: BIPOLAR II DISORDER
     Route: 065

REACTIONS (1)
  - Visuospatial deficit [Unknown]
